FAERS Safety Report 8722781 (Version 2)
Quarter: 2012Q4

REPORT INFORMATION
  Report Type: 
  Country: JP (occurrence: JP)
  Receive Date: 20120814
  Receipt Date: 20120830
  Transmission Date: 20130627
  Serious: Yes (Hospitalization)
  Sender: FDA-Public Use
  Company Number: JP-GLAXOSMITHKLINE-B0802967A

PATIENT
  Age: 84 Year
  Sex: Female
  Weight: 45 kg

DRUGS (2)
  1. VALTREX [Suspect]
     Indication: HERPES ZOSTER
     Dosage: 3000MG Per day
     Route: 048
     Dates: start: 20120515, end: 20120516
  2. ADEFURONIC [Concomitant]
     Indication: ANALGESIC THERAPY
     Dosage: 75MG Per day
     Route: 048
     Dates: start: 20120515

REACTIONS (8)
  - Renal failure acute [Recovered/Resolved]
  - Nervous system disorder [Recovered/Resolved]
  - Speech disorder [Recovered/Resolved]
  - Vomiting [Unknown]
  - Blood urea increased [Unknown]
  - Blood creatinine increased [Unknown]
  - Overdose [Unknown]
  - Thrombosis in device [Unknown]
